FAERS Safety Report 24916049 (Version 2)
Quarter: 2025Q1

REPORT INFORMATION
  Report Type: Spontaneous
  Country: GB (occurrence: GB)
  Receive Date: 20250203
  Receipt Date: 20250210
  Transmission Date: 20250408
  Serious: Yes (Hospitalization)
  Sender: MYLAN
  Company Number: GB-MYLANLABS-2025M1003024

PATIENT
  Age: 29 Year
  Sex: Female
  Weight: 60 kg

DRUGS (5)
  1. CLOZARIL [Suspect]
     Active Substance: CLOZAPINE
     Indication: Schizoaffective disorder
     Dosage: 12.5 MILLIGRAM, BID (PM)
     Route: 048
     Dates: start: 20250110, end: 20250111
  2. CLOZARIL [Suspect]
     Active Substance: CLOZAPINE
     Indication: Schizophrenia
     Dosage: 25 MILLIGRAM, BID (AM)
     Route: 048
     Dates: start: 20250112, end: 20250115
  3. CLOZARIL [Suspect]
     Active Substance: CLOZAPINE
     Dosage: 50 MILLIGRAM, PM (OD)
     Route: 048
     Dates: start: 20250116, end: 20250126
  4. CLOZARIL [Suspect]
     Active Substance: CLOZAPINE
     Dosage: 25 MILLIGRAM, AM (OD)
     Route: 048
     Dates: start: 20250117, end: 20250119
  5. CLOZARIL [Suspect]
     Active Substance: CLOZAPINE
     Dosage: 50 MILLIGRAM, AM (OD)
     Route: 048
     Dates: start: 20250120, end: 20250126

REACTIONS (10)
  - C-reactive protein increased [Not Recovered/Not Resolved]
  - Dyspnoea exertional [Recovered/Resolved]
  - Myalgia [Recovered/Resolved]
  - Salivary hypersecretion [Recovered/Resolved]
  - Pyrexia [Recovered/Resolved]
  - Tachycardia [Recovered/Resolved]
  - Diarrhoea [Recovered/Resolved]
  - Chest pain [Recovered/Resolved]
  - Treatment noncompliance [Unknown]
  - Off label use [Unknown]

NARRATIVE: CASE EVENT DATE: 20250123
